FAERS Safety Report 17125155 (Version 1)
Quarter: 2019Q4

REPORT INFORMATION
  Report Type: Spontaneous
  Country: US (occurrence: US)
  Receive Date: 20191206
  Receipt Date: 20191206
  Transmission Date: 20200122
  Serious: Yes (Hospitalization, Disabling, Other)
  Sender: FDA-Public Use
  Company Number: US-LANNETT COMPANY, INC.-US-2019LAN001182

PATIENT
  Sex: Male

DRUGS (1)
  1. RANITIDINE HYDROCHLORIDE. [Suspect]
     Active Substance: RANITIDINE HYDROCHLORIDE
     Indication: PEPTIC ULCER
     Dosage: 15 MG, BID, VIA FEEDING TUBE
     Route: 050
     Dates: start: 198702, end: 2019

REACTIONS (6)
  - Meningitis [Unknown]
  - Gait inability [Not Recovered/Not Resolved]
  - Aphasia [Not Recovered/Not Resolved]
  - Hospitalisation [Unknown]
  - Life support [Not Recovered/Not Resolved]
  - Bedridden [Not Recovered/Not Resolved]
